FAERS Safety Report 5454338-X (Version None)
Quarter: 2007Q3

REPORT INFORMATION
  Report Type: 
  Country: None (occurrence: None)
  Receive Date: 20070917
  Receipt Date: 20070228
  Transmission Date: 20080115
  Serious: Yes (Other)
  Sender: FDA-Public Use
  Company Number: US-ASTRAZENECA-2006UW11541

PATIENT
  Age: 32 Year
  Sex: Male
  Weight: 106.8 kg

DRUGS (3)
  1. SEROQUEL [Suspect]
     Indication: MENTAL DISORDER
     Route: 048
     Dates: end: 20061001
  2. HALDOL [Concomitant]
  3. RISPERDAL [Concomitant]

REACTIONS (1)
  - PANCREATITIS [None]
